FAERS Safety Report 24437884 (Version 1)
Quarter: 2024Q4

REPORT INFORMATION
  Report Type: Spontaneous
  Country: US (occurrence: None)
  Receive Date: 20241014
  Receipt Date: 20241014
  Transmission Date: 20250114
  Serious: No
  Sender: Public
  Company Number: None

PATIENT
  Sex: Male

DRUGS (1)
  1. GLATIRAMER ACETATE [Suspect]
     Active Substance: GLATIRAMER ACETATE
     Indication: Multiple sclerosis
     Dosage: FREQUENCY : 3 TIMES A WEEK;?
     Route: 042
     Dates: start: 202212

REACTIONS (7)
  - Chills [None]
  - Hypoaesthesia [None]
  - Paraesthesia [None]
  - Balance disorder [None]
  - Visual impairment [None]
  - Vision blurred [None]
  - Psychomotor skills impaired [None]
